FAERS Safety Report 7380478-4 (Version None)
Quarter: 2011Q1

REPORT INFORMATION
  Report Type: 
  Country: None (occurrence: None)
  Receive Date: 20110321
  Receipt Date: 20110310
  Transmission Date: 20110831
  Serious: Yes (Disabling, Other)
  Sender: FDA-Public Use
  Company Number: 2011SP011119

PATIENT
  Sex: Female

DRUGS (1)
  1. TICE BCG [Suspect]
     Indication: PRODUCT USED FOR UNKNOWN INDICATION
     Dates: start: 20091202

REACTIONS (5)
  - CONJUNCTIVITIS INFECTIVE [None]
  - ULCERATIVE KERATITIS [None]
  - ACCIDENTAL EXPOSURE [None]
  - ATYPICAL MYCOBACTERIUM TEST POSITIVE [None]
  - BLINDNESS UNILATERAL [None]
